FAERS Safety Report 21710330 (Version 1)
Quarter: 2022Q4

REPORT INFORMATION
  Report Type: Report from Study
  Country: CR (occurrence: CR)
  Receive Date: 20221211
  Receipt Date: 20221211
  Transmission Date: 20230113
  Serious: Yes (Other)
  Sender: FDA-Public Use
  Company Number: CR-BAYER-2022A166965

PATIENT
  Age: 81 Year
  Sex: Female

DRUGS (1)
  1. RIVAROXABAN [Suspect]
     Active Substance: RIVAROXABAN
     Indication: Aortic valve incompetence
     Dosage: 15 MG
     Route: 048

REACTIONS (3)
  - Aortic valve incompetence [Unknown]
  - Hyperparathyroidism [Unknown]
  - Osteoporosis [Unknown]
